FAERS Safety Report 9149060 (Version 4)
Quarter: 2013Q2

REPORT INFORMATION
  Report Type: Spontaneous
  Country: JP (occurrence: JP)
  Receive Date: 20130308
  Receipt Date: 20130502
  Transmission Date: 20140414
  Serious: Yes (Hospitalization, Other)
  Sender: FDA-Public Use
  Company Number: JP-PFIZER INC-2013079180

PATIENT
  Age: 77 Year
  Sex: Female

DRUGS (10)
  1. ANCARON [Suspect]
     Indication: ATRIAL FIBRILLATION
     Dosage: 100 MG TWICE DAILY
     Route: 048
     Dates: start: 20081113, end: 20130208
  2. ANCARON [Suspect]
     Indication: ARRHYTHMIA
  3. FEMARA [Suspect]
     Indication: BREAST CANCER
     Dosage: 2.5 MG, DAILY
     Route: 048
     Dates: start: 20090630, end: 20130111
  4. NU LOTAN [Concomitant]
     Indication: HYPERTENSION
     Dosage: UNK
  5. LIPITOR [Concomitant]
     Indication: HYPERLIPIDAEMIA
     Dosage: UNK
  6. BAYASPIRIN [Concomitant]
     Indication: CEREBRAL INFARCTION
     Dosage: UNK
  7. ARTIST [Concomitant]
     Indication: HYPERTENSION
     Dosage: UNK
  8. PARIET [Concomitant]
     Indication: GASTRIC ULCER
     Dosage: UNK
  9. WARFARIN [Concomitant]
     Indication: CEREBRAL INFARCTION
     Dosage: UNK
  10. HERBESSER R [Concomitant]
     Indication: HYPERTENSION
     Dosage: UNK

REACTIONS (2)
  - Hepatic cirrhosis [Not Recovered/Not Resolved]
  - Biopsy liver abnormal [Not Recovered/Not Resolved]
